FAERS Safety Report 23119400 (Version 1)
Quarter: 2023Q4

REPORT INFORMATION
  Report Type: Spontaneous
  Country: GB (occurrence: GB)
  Receive Date: 20231028
  Receipt Date: 20231028
  Transmission Date: 20240110
  Serious: Yes (Death, Other)
  Sender: FDA-Public Use
  Company Number: GB-002147023-PHHY2008GB11480

PATIENT
  Age: 22 Year
  Sex: Female

DRUGS (22)
  1. CYCLOSPORINE [Suspect]
     Active Substance: CYCLOSPORINE
     Indication: Haemorrhage
     Dosage: UNK, THERAPY END DATE : NASK
     Route: 065
     Dates: start: 200805
  2. CYCLOSPORINE [Suspect]
     Active Substance: CYCLOSPORINE
     Indication: Neutropenic sepsis
     Dosage: UNK
     Route: 065
  3. CYCLOSPORINE [Suspect]
     Active Substance: CYCLOSPORINE
     Indication: Aplastic anaemia
  4. CYCLOSPORINE [Suspect]
     Active Substance: CYCLOSPORINE
     Indication: Fungal infection
  5. CYCLOSPORINE [Suspect]
     Active Substance: CYCLOSPORINE
     Indication: Enterococcal infection
  6. CUBICIN [Suspect]
     Active Substance: DAPTOMYCIN
     Indication: Haemorrhage
     Dosage: 350 MG, Q48H, DURATION : 10 DAYS
     Route: 042
     Dates: start: 20080609, end: 20080618
  7. CUBICIN [Suspect]
     Active Substance: DAPTOMYCIN
     Indication: Aplastic anaemia
     Dosage: 350 MG, QOD, THERAPY END DATE : NASK
     Route: 041
     Dates: start: 20080609
  8. CUBICIN [Suspect]
     Active Substance: DAPTOMYCIN
     Indication: Fungal infection
     Route: 065
  9. CUBICIN [Suspect]
     Active Substance: DAPTOMYCIN
     Indication: Neutropenic sepsis
     Dosage: 3500 MILLIGRAM DAILY; 350 MG, 10QD (ALTERNATE DAY)
     Route: 042
  10. CUBICIN [Suspect]
     Active Substance: DAPTOMYCIN
     Indication: Enterococcal infection
     Dosage: 350 MG, Q48H, THERAPY END DATE : NASK
     Route: 042
     Dates: start: 20080609
  11. MEROPENEM [Suspect]
     Active Substance: MEROPENEM
     Indication: Fungal infection
     Dosage: 2 GRAM DAILY; 1 G, BID (2 G, QD), POWDER FOR SOLUTION FOR INJECTION/INFUSION, THERAPY END DATE : NAS
     Route: 042
     Dates: start: 20080529
  12. MEROPENEM [Suspect]
     Active Substance: MEROPENEM
     Indication: Aplastic anaemia
  13. MEROPENEM [Suspect]
     Active Substance: MEROPENEM
     Indication: Haemorrhage
  14. MEROPENEM [Suspect]
     Active Substance: MEROPENEM
     Indication: Neutropenic sepsis
  15. MEROPENEM [Suspect]
     Active Substance: MEROPENEM
     Indication: Enterococcal infection
  16. CANCIDAS [Concomitant]
     Active Substance: CASPOFUNGIN ACETATE
     Indication: Product used for unknown indication
     Dosage: 35 MG
     Route: 042
     Dates: start: 200805
  17. CASPOFUNGIN [Concomitant]
     Active Substance: CASPOFUNGIN
     Indication: Fungal infection
     Dosage: 35 MILLIGRAM DAILY; 35 MG, QD
     Route: 042
     Dates: start: 200805
  18. LEVETIRACETAM [Concomitant]
     Active Substance: LEVETIRACETAM
     Indication: Product used for unknown indication
     Dosage: UNK
     Route: 065
  19. THIOPENTAL [Concomitant]
     Active Substance: THIOPENTAL
     Indication: Product used for unknown indication
     Dosage: UNK
     Route: 065
  20. TRANEXAMIC ACID [Concomitant]
     Active Substance: TRANEXAMIC ACID
     Indication: Haemorrhage
     Dosage: 9 GRAM DAILY; 1 GRAM, TID, UNIT DOSE : 3 GRAM, FREQUENCY : 3 TIMES A DAY, DURATION : 17 DAYS
     Route: 042
     Dates: start: 20080602, end: 20080618
  21. TRANEXAMIC ACID [Concomitant]
     Active Substance: TRANEXAMIC ACID
     Dosage: UNK UNK, UNK, DURATION : 17 DAYS
     Route: 065
     Dates: start: 20080602, end: 20080618
  22. TRANEXAMIC ACID [Concomitant]
     Active Substance: TRANEXAMIC ACID
     Dosage: 3 GRAM DAILY; 1 G, TID (3 G, QD)
     Route: 042
     Dates: start: 20080602

REACTIONS (7)
  - Brain oedema [Fatal]
  - Death [Fatal]
  - Haemorrhage intracranial [Fatal]
  - Nosocomial infection [Unknown]
  - Fungal infection [Unknown]
  - Seizure [Unknown]
  - Enterococcal sepsis [Unknown]

NARRATIVE: CASE EVENT DATE: 20080616
